FAERS Safety Report 19786307 (Version 1)
Quarter: 2021Q3

REPORT INFORMATION
  Report Type: Other
  Country: KR (occurrence: KR)
  Receive Date: 20210903
  Receipt Date: 20210903
  Transmission Date: 20211014
  Serious: Yes (Other)
  Sender: FDA-Public Use
  Company Number: KR-NAVINTA LLC-000190

PATIENT
  Age: 51 Year
  Sex: Female

DRUGS (6)
  1. PROPOFOL. [Suspect]
     Active Substance: PROPOFOL
     Indication: ANAESTHESIA
     Dosage: 100 MG
  2. REMIFENTANIL [Suspect]
     Active Substance: REMIFENTANIL
     Indication: ANAESTHESIA
     Dosage: TARGET EFFECT SITE CONCENTRATION WAS 2.0 NG/ML INITIALLY AND WAS INCREASED TO 4.0 NG/ML.
     Route: 042
  3. DESFLURANE. [Suspect]
     Active Substance: DESFLURANE
     Indication: ANAESTHESIA
     Dosage: TO MAINTAIN THE DEPTH OF ANESTHESIA, 6 VOL% WAS ADMINISTERED
  4. ROCURONIUM [Suspect]
     Active Substance: ROCURONIUM BROMIDE
     Indication: ANAESTHESIA
     Dosage: 0.3 MG/KG
  5. LIDOCAINE. [Concomitant]
     Active Substance: LIDOCAINE
     Indication: ANAESTHESIA
     Dosage: 40 MG
     Route: 042
  6. DESFLURANE. [Suspect]
     Active Substance: DESFLURANE
     Indication: ANAESTHESIA
     Dosage: ANESTHESIA WAS MAINTAINED WITH 7 VOL% OF DESFLURANE.

REACTIONS (1)
  - Sinus arrest [Recovered/Resolved]
